FAERS Safety Report 24416449 (Version 1)
Quarter: 2024Q4

REPORT INFORMATION
  Report Type: Spontaneous
  Country: US (occurrence: None)
  Receive Date: 20241008
  Receipt Date: 20241008
  Transmission Date: 20250115
  Serious: Yes (Disabling)
  Sender: Public
  Company Number: None

PATIENT
  Age: 65 Year
  Sex: Female
  Weight: 67.5 kg

DRUGS (3)
  1. METHYLPREDNISOLONE [Suspect]
     Active Substance: METHYLPREDNISOLONE
     Indication: Abdominal pain
     Dosage: OTHER QUANTITY : 21 TABLET(S);?OTHER FREQUENCY : MANUFACTURER;?
     Route: 048
     Dates: start: 20241004, end: 20241008
  2. ATORVASTATIN [Concomitant]
     Active Substance: ATORVASTATIN
  3. Nature^s Bounty Hair, Skin + Nails softgels [Concomitant]

REACTIONS (5)
  - Vertigo [None]
  - Headache [None]
  - Anxiety [None]
  - Somnolence [None]
  - Product complaint [None]

NARRATIVE: CASE EVENT DATE: 20241007
